FAERS Safety Report 4834884-X (Version None)
Quarter: 2005Q4

REPORT INFORMATION
  Report Type: 
  Country: None (occurrence: None)
  Receive Date: 20051115
  Receipt Date: 20051104
  Transmission Date: 20060501
  Serious: No
  Sender: FDA-Public Use
  Company Number: 21-732-2005-M0096

PATIENT
  Age: 69 Year
  Sex: Male

DRUGS (1)
  1. VANTAS [Suspect]
     Indication: PROSTATE CANCER
     Dosage: 50MG/YEAR, SUBCUTANEOUS
     Route: 058
     Dates: start: 20050311, end: 20050708

REACTIONS (4)
  - BLOOD TESTOSTERONE INCREASED [None]
  - DRUG INEFFECTIVE [None]
  - IMPLANT SITE REACTION [None]
  - PROSTATIC SPECIFIC ANTIGEN INCREASED [None]
